FAERS Safety Report 8402118-5 (Version None)
Quarter: 2012Q2

REPORT INFORMATION
  Report Type: 
  Country: None (occurrence: None)
  Receive Date: 20120529
  Receipt Date: 20120521
  Transmission Date: 20120825
  Serious: Yes (Hospitalization)
  Sender: FDA-Public Use
  Company Number: 2012SP027000

PATIENT
  Age: 51 Year
  Sex: Female
  Weight: 74 kg

DRUGS (14)
  1. TRUVADA [Concomitant]
  2. VICTRELIS [Suspect]
     Indication: HEPATITIS C
     Dosage: 800 MG;TID;
     Dates: start: 20120309
  3. ACETAMINOPHEN [Concomitant]
  4. FORTIMEL [Concomitant]
  5. VIRAFERONPEG [Suspect]
     Indication: HEPATITIS C
     Dosage: 100 MCG;QW; 80 MCG;QW;
     Dates: start: 20120210
  6. REBETOL [Suspect]
     Indication: HEPATITIS C
     Dosage: 1000 MG;QD;
     Dates: start: 20120210
  7. EFFEXOR [Concomitant]
  8. SOLIAN [Concomitant]
  9. ISENTRESS [Concomitant]
  10. METHADONE HCL [Concomitant]
  11. ATHYMIL [Concomitant]
  12. LEVOCARNIL [Concomitant]
  13. NOCTAMIDE [Concomitant]
  14. FOLIC ACID [Concomitant]

REACTIONS (8)
  - ASTHENIA [None]
  - GENERAL PHYSICAL HEALTH DETERIORATION [None]
  - DRUG INTOLERANCE [None]
  - WEIGHT DECREASED [None]
  - DEPRESSION [None]
  - INFLUENZA [None]
  - TREATMENT FAILURE [None]
  - PANCYTOPENIA [None]
